FAERS Safety Report 10078923 (Version 1)
Quarter: 2014Q2

REPORT INFORMATION
  Report Type: Spontaneous
  Country: GB (occurrence: GB)
  Receive Date: 20140415
  Receipt Date: 20140415
  Transmission Date: 20141212
  Serious: Yes (Other)
  Sender: FDA-Public Use
  Company Number: GB-AMGEN-GBRSP2014026101

PATIENT
  Sex: 0

DRUGS (2)
  1. PROLIA [Suspect]
     Indication: PRODUCT USED FOR UNKNOWN INDICATION
     Route: 065
  2. PROTELOS [Concomitant]

REACTIONS (3)
  - Fracture [Unknown]
  - Hypoparathyroidism [Unknown]
  - Nervousness [Unknown]
